FAERS Safety Report 8196663-8 (Version None)
Quarter: 2012Q1

REPORT INFORMATION
  Report Type: 
  Country: None (occurrence: None)
  Receive Date: 20120307
  Receipt Date: 20120221
  Transmission Date: 20120608
  Serious: Yes (Hospitalization)
  Sender: FDA-Public Use
  Company Number: 2012SGN00017

PATIENT
  Age: 80 Year
  Sex: Male

DRUGS (1)
  1. ADCETRIS [Suspect]
     Indication: ANAPLASTIC LARGE CELL LYMPHOMA T- AND NULL-CELL TYPES
     Dosage: 1.8 MG/KG, Q12D
     Dates: start: 20111215, end: 20111215

REACTIONS (1)
  - ARRHYTHMIA [None]
